FAERS Safety Report 4807677-7 (Version None)
Quarter: 2005Q4

REPORT INFORMATION
  Report Type: 
  Country: None (occurrence: None)
  Receive Date: 20051020
  Receipt Date: 20051004
  Transmission Date: 20060501
  Serious: Yes (Disabling, Other)
  Sender: FDA-Public Use
  Company Number: 2005137581

PATIENT
  Age: 45 Year
  Sex: Female
  Weight: 99.7913 kg

DRUGS (14)
  1. LIPITOR [Suspect]
     Indication: BLOOD CHOLESTEROL
     Dosage: 20 MG (20 MG, 1 IN 1 D), ORAL
     Route: 048
  2. DYAZIDE [Concomitant]
  3. ATENOLOL [Concomitant]
  4. CYMBALTA [Concomitant]
  5. ALLEGRA [Concomitant]
  6. FLONASE (FLUTICAOSNE PROPIONATE) [Concomitant]
  7. BECONASE (BECLOMETASONE DIPROPIONATE) [Concomitant]
  8. RHINOCORT [Concomitant]
  9. VICODIN (HYDROCODONE BITARETRATE, PARACETAMOL) [Concomitant]
  10. XENICAL [Concomitant]
  11. AMBIEN [Concomitant]
  12. RESTORIL [Concomitant]
  13. TRANXENE [Concomitant]
  14. TRAMADOL HCL [Concomitant]

REACTIONS (11)
  - BRAIN NEOPLASM [None]
  - CARDIAC FAILURE CONGESTIVE [None]
  - EXOSTOSIS [None]
  - FIBROMYALGIA [None]
  - INFLUENZA [None]
  - INTERVERTEBRAL DISC PROTRUSION [None]
  - MENIERE'S DISEASE [None]
  - OSTEOARTHRITIS [None]
  - PAIN [None]
  - PLANTAR FASCIITIS [None]
  - POST PROCEDURAL COMPLICATION [None]
